FAERS Safety Report 20088867 (Version 4)
Quarter: 2022Q2

REPORT INFORMATION
  Report Type: Report from Study
  Country: US (occurrence: US)
  Receive Date: 20211119
  Receipt Date: 20220419
  Transmission Date: 20220720
  Serious: No
  Sender: FDA-Public Use
  Company Number: US-NOVARTISTESTPH-NVSC2021US264513

PATIENT
  Sex: Female

DRUGS (1)
  1. KESIMPTA [Suspect]
     Active Substance: OFATUMUMAB
     Indication: Multiple sclerosis
     Dosage: LOADING DOSE 20 MG/0.4 ML, WEEKLY UPTO 3 WEEKS AND THEN MONTHLY
     Route: 058
     Dates: start: 20210920

REACTIONS (9)
  - Anxiety [Unknown]
  - Depression [Unknown]
  - Stress [Unknown]
  - Nervousness [Unknown]
  - Fatigue [Unknown]
  - Dizziness [Unknown]
  - Panic reaction [Unknown]
  - Back pain [Unknown]
  - Therapeutic product effect decreased [Unknown]
